FAERS Safety Report 10812099 (Version 1)
Quarter: 2015Q1

REPORT INFORMATION
  Report Type: Spontaneous
  Country: US (occurrence: None)
  Receive Date: 20150212
  Receipt Date: 20150212
  Transmission Date: 20150721
  Serious: Yes (Other)
  Sender: FDA-Public Use
  Company Number: None

PATIENT
  Age: 64 Year
  Sex: Female
  Weight: 65.77 kg

DRUGS (8)
  1. CITRICAL WITH MEGNESIUM [Concomitant]
  2. NATURAL VITAMIN E [Concomitant]
  3. VITAMIN C [Concomitant]
     Active Substance: ASCORBIC ACID
  4. VITAMIN OTC [Concomitant]
  5. ONE DAY FOR WOMEN [Concomitant]
  6. GARLIC. [Concomitant]
     Active Substance: GARLIC
  7. LEVOFLOXACIN 750 MG [Suspect]
     Active Substance: LEVOFLOXACIN
     Indication: BRONCHITIS
     Dosage: 1TABLET EVEY 24 HOURS, ONCE DAILY, TAKEN BY MOUTH
     Route: 048
     Dates: start: 20141227, end: 20141230
  8. FISH OIL [Concomitant]
     Active Substance: FISH OIL

REACTIONS (3)
  - Musculoskeletal pain [None]
  - Joint range of motion decreased [None]
  - Arthralgia [None]

NARRATIVE: CASE EVENT DATE: 20141227
